FAERS Safety Report 11144647 (Version 2)
Quarter: 2015Q2

REPORT INFORMATION
  Report Type: Spontaneous
  Country: JP (occurrence: JP)
  Receive Date: 20150526
  Receipt Date: 20150612
  Transmission Date: 20150821
  Serious: Yes (Other)
  Sender: FDA-Public Use
  Company Number: JP-TEVA-564809ISR

PATIENT
  Age: 73 Year
  Sex: Male
  Weight: 40 kg

DRUGS (3)
  1. GIMERACIL, OTERACIL, TEGAFUR [Suspect]
     Active Substance: GIMERACIL\OTERACIL\TEGAFUR
     Indication: NEUROENDOCRINE CARCINOMA
     Dosage: 100 MG/DAY FOR 5 DAYS ON, 2 DAYS OFF
     Route: 048
  2. CISPLATIN. [Suspect]
     Active Substance: CISPLATIN
     Indication: NEUROENDOCRINE CARCINOMA
     Dosage: 40 MG/BODY ONCE EVERY 2 WEEKS
     Route: 042
  3. WARFARIN [Concomitant]
     Active Substance: WARFARIN
     Indication: ATRIAL FIBRILLATION
     Route: 065

REACTIONS (2)
  - Lacrimation increased [Unknown]
  - Keratitis [Unknown]
